FAERS Safety Report 12613241 (Version 6)
Quarter: 2016Q3

REPORT INFORMATION
  Report Type: Spontaneous
  Country: IT (occurrence: IT)
  Receive Date: 20160802
  Receipt Date: 20160913
  Transmission Date: 20161109
  Serious: Yes (Other)
  Sender: FDA-Public Use
  Company Number: IT-ACCORD-042748

PATIENT
  Age: 77 Year
  Sex: Male
  Weight: 69 kg

DRUGS (5)
  1. LEDERFOLIN [Concomitant]
     Active Substance: LEUCOVORIN CALCIUM
     Indication: RECTAL ADENOCARCINOMA
     Dosage: ALSO RECEIVED AT THE DOSE OF 280 MG FROM 11-FEB-2016 TO 13-MAY-2016
     Route: 042
     Dates: start: 20150210, end: 20150728
  2. AVASTIN [Suspect]
     Active Substance: BEVACIZUMAB
     Indication: RECTAL ADENOCARCINOMA
     Dosage: ALSO RECEIVED FROM 11-FEB-2016 TO 13-MAY-2016
     Route: 042
     Dates: start: 20150210
  3. ACEQUIDE [Concomitant]
  4. IRINOTECAN [Suspect]
     Active Substance: IRINOTECAN
     Indication: RECTAL ADENOCARCINOMA
     Dosage: ALSO RECEIVED AT THE DOSE OF 250 MGFROM 11-FEB-2016 TO 13-MAY-2016
     Route: 042
     Dates: start: 20150210
  5. FLUOROURACIL. [Suspect]
     Active Substance: FLUOROURACIL
     Indication: RECTAL ADENOCARCINOMA
     Dosage: ALSO RECEIVED 720 MG CYCLICAL BY INTRAVENOUS BOLUS?575(I.V.BOLUS),3455 MG I.V.,11-FEB TO 13-MAY-201
     Route: 042
     Dates: start: 20150210

REACTIONS (11)
  - Thrombocytopenia [Recovering/Resolving]
  - Abdominal pain [Recovering/Resolving]
  - Paraesthesia [Not Recovered/Not Resolved]
  - Mucosal inflammation [Recovering/Resolving]
  - Diarrhoea [Recovering/Resolving]
  - Anaemia [Unknown]
  - Dry skin [Not Recovered/Not Resolved]
  - Neutropenia [Recovering/Resolving]
  - Skin hyperpigmentation [Not Recovered/Not Resolved]
  - Hyperglycaemia [Recovering/Resolving]
  - Cardiotoxicity [Recovering/Resolving]

NARRATIVE: CASE EVENT DATE: 20150305
